FAERS Safety Report 22959795 (Version 4)
Quarter: 2023Q4

REPORT INFORMATION
  Report Type: Report from Study
  Country: CN (occurrence: None)
  Receive Date: 20230920
  Receipt Date: 20231127
  Transmission Date: 20240110
  Serious: Yes (Hospitalization)
  Sender: FDA-Public Use
  Company Number: CN-ROCHE-3281093

PATIENT
  Age: 45 Year
  Sex: Female
  Weight: 58 kg

DRUGS (13)
  1. GLOFITAMAB [Suspect]
     Active Substance: GLOFITAMAB
     Indication: Diffuse large B-cell lymphoma
     Route: 042
     Dates: start: 20210831
  2. GLOFITAMAB [Suspect]
     Active Substance: GLOFITAMAB
     Dosage: START DATE OF MOST RECENT DOSE 30 MG OF GLOFITAMAB PRIOR TO SAE: 21/DEC/2021
     Route: 042
  3. OBINUTUZUMAB [Suspect]
     Active Substance: OBINUTUZUMAB
     Indication: Diffuse large B-cell lymphoma
     Dosage: START DATE OF MOST RECENT DOSE 1000 MG OF OBINUTUZUMAB PRIOR TO SAE: 24/AUG/2021
     Route: 042
     Dates: start: 20210824
  4. TOCILIZUMAB [Suspect]
     Active Substance: TOCILIZUMAB
     Indication: Diffuse large B-cell lymphoma
     Dosage: START DATE OF MOST RECENT DOSE 480 MG OF STUDY DRUG PRIOR TO SAE: 14/JAN/2022
     Route: 042
     Dates: start: 20220114
  5. GEMCITABINE [Suspect]
     Active Substance: GEMCITABINE
     Indication: Diffuse large B-cell lymphoma
     Route: 042
     Dates: start: 20210825
  6. GEMCITABINE [Suspect]
     Active Substance: GEMCITABINE
     Dosage: START DATE OF MOST RECENT DOSE 1747 MG OF GEMCITABINE PRIOR TO SAE: 21/DEC/2021
     Route: 042
  7. OXALIPLATIN [Suspect]
     Active Substance: OXALIPLATIN
     Indication: Diffuse large B-cell lymphoma
     Dosage: START DATE OF MOST RECENT DOSE 175MG OF OXALIPLATIN PRIOR TO SAE: 21/DEC/2021
     Route: 042
     Dates: start: 20210825
  8. METHYLCOBALAMIN [Concomitant]
     Active Substance: METHYLCOBALAMIN
     Indication: Polyneuropathy
     Route: 048
     Dates: start: 20220121, end: 202208
  9. D-CAL [Concomitant]
     Active Substance: CALCIUM CARBONATE
     Route: 048
     Dates: start: 20220121, end: 20220724
  10. ESOMEPRAZOLE SODIUM [Concomitant]
     Active Substance: ESOMEPRAZOLE SODIUM
     Route: 048
     Dates: start: 20220126
  11. PREDNISOLONE ACETATE [Concomitant]
     Active Substance: PREDNISOLONE ACETATE
     Route: 048
     Dates: start: 20220216
  12. POTASSIUM CHLORIDE [Concomitant]
     Active Substance: POTASSIUM CHLORIDE
     Route: 042
     Dates: start: 20220407, end: 20220412
  13. VITAMIN B1 [Concomitant]
     Active Substance: THIAMINE HYDROCHLORIDE
     Indication: Polyneuropathy
     Route: 048
     Dates: start: 20210621, end: 202208

REACTIONS (1)
  - Gastric ulcer [Not Recovered/Not Resolved]

NARRATIVE: CASE EVENT DATE: 20220418
